FAERS Safety Report 12646296 (Version 1)
Quarter: 2016Q3

REPORT INFORMATION
  Report Type: Spontaneous
  Country: CN (occurrence: CN)
  Receive Date: 20160812
  Receipt Date: 20160812
  Transmission Date: 20161109
  Serious: Yes (Other)
  Sender: FDA-Public Use
  Company Number: CN-009507513-1608CHN003566

PATIENT
  Age: 15 Year
  Sex: Female
  Weight: 51 kg

DRUGS (4)
  1. INTRON A [Suspect]
     Active Substance: INTERFERON ALFA-2B
     Indication: MALIGNANT MELANOMA STAGE II
     Dosage: 11 MILLION IU, UNK
     Dates: start: 20141206, end: 20141212
  2. INTRON A [Suspect]
     Active Substance: INTERFERON ALFA-2B
     Dosage: 11.5 MILLION IU, UNK
     Route: 030
     Dates: start: 201501, end: 201512
  3. INTRON A [Suspect]
     Active Substance: INTERFERON ALFA-2B
     Dosage: 14 MILLION IU, UNK
     Dates: start: 201604, end: 201606
  4. INTRON A [Suspect]
     Active Substance: INTERFERON ALFA-2B
     Dosage: ON THE 2ND, 3RD AND 4TH WEEK THE DOSAGE WAS GRADUALLY INCREASED TO 28 MILLION IU
     Dates: start: 20141213, end: 20150102

REACTIONS (4)
  - Metastases to lymph nodes [Unknown]
  - Drug administered to patient of inappropriate age [Unknown]
  - Neoplasm [Recovered/Resolved]
  - N-ras gene mutation [Unknown]

NARRATIVE: CASE EVENT DATE: 20141206
